FAERS Safety Report 23771222 (Version 1)
Quarter: 2024Q2

REPORT INFORMATION
  Report Type: Spontaneous
  Country: US (occurrence: US)
  Receive Date: 20240423
  Receipt Date: 20240423
  Transmission Date: 20240716
  Serious: No
  Sender: FDA-Public Use
  Company Number: US-Accord-357237

PATIENT
  Age: 81 Year
  Sex: Female
  Weight: 77.11 kg

DRUGS (4)
  1. SIMVASTATIN [Suspect]
     Active Substance: SIMVASTATIN
     Indication: Blood cholesterol
     Dosage: DAILY AT NIGHT
     Route: 048
  2. ZYRTEC [Concomitant]
     Active Substance: CETIRIZINE HYDROCHLORIDE
     Indication: Seasonal allergy
  3. TRIAMTERENE [Concomitant]
     Active Substance: TRIAMTERENE
     Indication: Blood pressure measurement
  4. VENTOLIN [Concomitant]
     Active Substance: ALBUTEROL SULFATE
     Indication: Wheezing
     Dosage: INHALER, 90MCG, 2 PUFFS?EVERY 4 HOURS AS NEEDED

REACTIONS (5)
  - Hypersensitivity [Unknown]
  - Dysphonia [Unknown]
  - Wheezing [Unknown]
  - COVID-19 [Unknown]
  - Recalled product administered [Unknown]

NARRATIVE: CASE EVENT DATE: 20230208
